FAERS Safety Report 14416744 (Version 1)
Quarter: 2018Q1

REPORT INFORMATION
  Report Type: Spontaneous
  Country: CN (occurrence: CN)
  Receive Date: 20180122
  Receipt Date: 20180122
  Transmission Date: 20180509
  Serious: Yes (Death)
  Sender: FDA-Public Use
  Company Number: CN-ELI_LILLY_AND_COMPANY-CN201801008589

PATIENT
  Age: 42 Year
  Sex: Male

DRUGS (1)
  1. ERBITUX [Suspect]
     Active Substance: CETUXIMAB
     Indication: RECTOSIGMOID CANCER
     Dosage: 400 MG/M2, UNKNOWN
     Route: 042
     Dates: start: 20170227

REACTIONS (4)
  - Upper gastrointestinal haemorrhage [Fatal]
  - Respiratory failure [Fatal]
  - Circulatory collapse [Fatal]
  - Malignant neoplasm progression [Fatal]

NARRATIVE: CASE EVENT DATE: 20170303
